FAERS Safety Report 14779482 (Version 1)
Quarter: 2018Q2

REPORT INFORMATION
  Report Type: Spontaneous
  Country: US (occurrence: US)
  Receive Date: 20180412
  Receipt Date: 20180412
  Transmission Date: 20180711
  Serious: Yes (Death, Other)
  Sender: FDA-Public Use
  Company Number: None

PATIENT
  Age: 46 Year
  Sex: Female

DRUGS (1)
  1. CLOZAPINE. [Suspect]
     Active Substance: CLOZAPINE
     Indication: SCHIZOPHRENIA
     Route: 048
     Dates: start: 20141201, end: 20150102

REACTIONS (7)
  - Cardiac arrest [None]
  - Choking [None]
  - Accidental death [None]
  - Asphyxia [None]
  - Respiratory failure [None]
  - Aspiration [None]
  - Loss of consciousness [None]

NARRATIVE: CASE EVENT DATE: 20150102
